FAERS Safety Report 16743601 (Version 3)
Quarter: 2020Q4

REPORT INFORMATION
  Report Type: Report from Study
  Country: None (occurrence: CA)
  Receive Date: 20190827
  Receipt Date: 20201112
  Transmission Date: 20210113
  Serious: Yes (Other)
  Sender: FDA-Public Use
  Company Number: CA-ABBVIE-19K-028-2901994-00

PATIENT
  Sex: Male

DRUGS (1)
  1. HUMIRA [Suspect]
     Active Substance: ADALIMUMAB
     Indication: PSORIATIC ARTHROPATHY
     Route: 058
     Dates: start: 20120228, end: 202002

REACTIONS (5)
  - Lacrimal disorder [Unknown]
  - Accident [Unknown]
  - Eye prosthesis insertion [Unknown]
  - Lacrimation increased [Not Recovered/Not Resolved]
  - Post procedural complication [Unknown]
